FAERS Safety Report 18597729 (Version 1)
Quarter: 2020Q4

REPORT INFORMATION
  Report Type: Spontaneous
  Country: FR (occurrence: FR)
  Receive Date: 20201209
  Receipt Date: 20201209
  Transmission Date: 20210114
  Serious: Yes (Other)
  Sender: FDA-Public Use
  Company Number: FR-TEVA-2020-FR-1855804

PATIENT
  Age: 21 Year
  Sex: Female

DRUGS (6)
  1. DESLORATADINE. [Suspect]
     Active Substance: DESLORATADINE
     Dosage: NR
     Route: 065
  2. LORATADINE. [Suspect]
     Active Substance: LORATADINE
     Dosage: NR
     Route: 065
  3. ALPRAZOLAM. [Suspect]
     Active Substance: ALPRAZOLAM
     Dosage: NR
     Route: 065
  4. CETIRIZINE (DICHLORHYDRATE DE) [Suspect]
     Active Substance: CETIRIZINE HYDROCHLORIDE
     Dosage: NR
     Route: 065
  5. OXOMEMAZINE [Suspect]
     Active Substance: OXOMEMAZINE
     Dosage: NR
     Route: 065
  6. CHLORPHENAMINE (MALEATE DE) [Suspect]
     Active Substance: CHLORPHENIRAMINE MALEATE
     Dosage: NR
     Route: 065

REACTIONS (1)
  - Victim of chemical submission [Unknown]

NARRATIVE: CASE EVENT DATE: 20190727
